FAERS Safety Report 16051316 (Version 2)
Quarter: 2019Q1

REPORT INFORMATION
  Report Type: Spontaneous
  Country: US (occurrence: US)
  Receive Date: 20190308
  Receipt Date: 20190315
  Transmission Date: 20190418
  Serious: No
  Sender: FDA-Public Use
  Company Number: US-JNJFOC-20190219359

PATIENT
  Sex: Female
  Weight: 45.36 kg

DRUGS (2)
  1. MENS ROGAINE EXTRA STRENGTH UNSCENTED [Suspect]
     Active Substance: MINOXIDIL
     Indication: ALOPECIA
     Dosage: HALF A CAP FULL
     Route: 061
     Dates: start: 2019, end: 201902
  2. MENS ROGAINE EXTRA STRENGTH UNSCENTED [Suspect]
     Active Substance: MINOXIDIL
     Route: 061

REACTIONS (4)
  - Overdose [Unknown]
  - Product use issue [Unknown]
  - Product formulation issue [Unknown]
  - Off label use [Unknown]
